FAERS Safety Report 21918726 (Version 2)
Quarter: 2023Q1

REPORT INFORMATION
  Report Type: Report from Study
  Country: US (occurrence: US)
  Receive Date: 20230127
  Receipt Date: 20230202
  Transmission Date: 20230417
  Serious: No
  Sender: FDA-Public Use
  Company Number: US-002147023-NVSC2023US014992

PATIENT
  Age: 52 Year
  Sex: Male
  Weight: 72.57 kg

DRUGS (2)
  1. ENTRESTO [Suspect]
     Active Substance: SACUBITRIL\VALSARTAN
     Indication: Muscular dystrophy
     Dosage: 50 MG, BID, (24/26 MG)
     Route: 048
     Dates: start: 2022
  2. ENTRESTO [Suspect]
     Active Substance: SACUBITRIL\VALSARTAN
     Indication: Cardiac disorder
     Dosage: 100 MG, BID, (49/51 MG)
     Route: 048

REACTIONS (4)
  - Hypotension [Not Recovered/Not Resolved]
  - Throat clearing [Recovering/Resolving]
  - COVID-19 [Recovered/Resolved]
  - Off label use [Not Recovered/Not Resolved]

NARRATIVE: CASE EVENT DATE: 20221201
